FAERS Safety Report 23208547 (Version 1)
Quarter: 2023Q4

REPORT INFORMATION
  Report Type: Spontaneous
  Country: CN (occurrence: CN)
  Receive Date: 20231121
  Receipt Date: 20231121
  Transmission Date: 20240110
  Serious: Yes (Other)
  Sender: FDA-Public Use
  Company Number: CN-JNJFOC-20231133004

PATIENT

DRUGS (1)
  1. STELARA [Suspect]
     Active Substance: USTEKINUMAB
     Indication: Product used for unknown indication
     Route: 040
     Dates: start: 20231108

REACTIONS (5)
  - Respiratory distress [Unknown]
  - Infusion related reaction [Unknown]
  - Muscular weakness [Unknown]
  - Abdominal pain [Unknown]
  - Rash pruritic [Unknown]

NARRATIVE: CASE EVENT DATE: 20231108
